FAERS Safety Report 4532220-X (Version None)
Quarter: 2004Q4

REPORT INFORMATION
  Report Type: 
  Country: None (occurrence: None)
  Receive Date: 20041217
  Receipt Date: 20040816
  Transmission Date: 20050328
  Serious: Yes (Death)
  Sender: FDA-Public Use
  Company Number: 04KOR0191

PATIENT
  Age: 90 Year
  Sex: Female

DRUGS (3)
  1. AGGRASTAT [Suspect]
     Indication: ACUTE MYOCARDIAL INFARCTION
     Dosage: INJECTION
     Dates: start: 20040509, end: 20040509
  2. AGGRASTAT [Suspect]
     Indication: ACUTE MYOCARDIAL INFARCTION
     Dosage: INTRAVENOUS
     Route: 042
     Dates: start: 20040509, end: 20040511
  3. NADROPARIN [Concomitant]

REACTIONS (1)
  - CEREBRAL INFARCTION [None]
